FAERS Safety Report 5036936-0 (Version None)
Quarter: 2006Q2

REPORT INFORMATION
  Report Type: 
  Country: None (occurrence: None)
  Receive Date: 20060622
  Receipt Date: 20060612
  Transmission Date: 20061013
  Serious: Yes (Other)
  Sender: FDA-Public Use
  Company Number: 2006074681

PATIENT
  Age: 29 Year
  Sex: Male
  Weight: 81.6475 kg

DRUGS (1)
  1. NASALCROM [Suspect]
     Indication: RHINORRHOEA
     Dosage: 1 SPRAY IN EACH NOSTRIL TWICE, NASAL
     Route: 045
     Dates: start: 20060611, end: 20060611

REACTIONS (5)
  - CHEST DISCOMFORT [None]
  - DIZZINESS [None]
  - HEADACHE [None]
  - SWELLING FACE [None]
  - SWOLLEN TONGUE [None]
